FAERS Safety Report 7436175-X (Version None)
Quarter: 2011Q2

REPORT INFORMATION
  Report Type: 
  Country: None (occurrence: None)
  Receive Date: 20110425
  Receipt Date: 20110421
  Transmission Date: 20111010
  Serious: Yes (Death)
  Sender: FDA-Public Use
  Company Number: GB-ABBOTT-07P-167-0414752-00

PATIENT

DRUGS (3)
  1. TEVETEN [Suspect]
     Indication: DRUG EXPOSURE DURING PREGNANCY
     Route: 064
  2. BENDROFLUAZIDE [Concomitant]
     Indication: PRODUCT USED FOR UNKNOWN INDICATION
  3. METFORMIN [Concomitant]
     Indication: PRODUCT USED FOR UNKNOWN INDICATION

REACTIONS (4)
  - CAUDAL REGRESSION SYNDROME [None]
  - PULMONARY HYPOPLASIA [None]
  - HYPOPERFUSION [None]
  - DRUG EXPOSURE DURING PREGNANCY [None]
